FAERS Safety Report 9728050 (Version 1)
Quarter: 2013Q4

REPORT INFORMATION
  Report Type: Spontaneous
  Country: US (occurrence: None)
  Receive Date: 20131203
  Receipt Date: 20131203
  Transmission Date: 20140711
  Serious: No
  Sender: FDA-Public Use
  Company Number: None

PATIENT
  Age: 23 Year
  Sex: Female
  Weight: 52.16 kg

DRUGS (2)
  1. MINASTRIN 24 FE [Suspect]
     Indication: MUSCLE SPASMS
     Dosage: 1 PILL, ONCE DAILY, TAKEN BY MOUTH
     Dates: start: 20131020, end: 20131128
  2. MINASTRIN 24 FE [Suspect]
     Indication: CONTRACEPTION
     Dosage: 1 PILL, ONCE DAILY, TAKEN BY MOUTH
     Dates: start: 20131020, end: 20131128

REACTIONS (12)
  - Lip swelling [None]
  - Eye swelling [None]
  - Tremor [None]
  - Dyspnoea [None]
  - Nausea [None]
  - Anxiety [None]
  - Asthenia [None]
  - Fatigue [None]
  - Balance disorder [None]
  - Dizziness [None]
  - Tachycardia [None]
  - Memory impairment [None]
